FAERS Safety Report 6437538-1 (Version None)
Quarter: 2009Q4

REPORT INFORMATION
  Report Type: 
  Country: None (occurrence: None)
  Receive Date: 20091112
  Receipt Date: 20091103
  Transmission Date: 20100525
  Serious: Yes (Other)
  Sender: FDA-Public Use
  Company Number: US-JNJCH-2009028916

PATIENT
  Age: 5 Year
  Sex: Female
  Weight: 29.5 kg

DRUGS (1)
  1. PURELL ORIGINAL [Suspect]
     Indication: ACCIDENTAL EXPOSURE
     Dosage: TEXT:UNSPECIFIED ONCE A DAY
     Route: 061
     Dates: start: 20091102, end: 20091102

REACTIONS (3)
  - ACCIDENTAL EXPOSURE [None]
  - OCULAR HYPERAEMIA [None]
  - SWELLING FACE [None]
